FAERS Safety Report 11994199 (Version 1)
Quarter: 2016Q1

REPORT INFORMATION
  Report Type: Spontaneous
  Country: US (occurrence: US)
  Receive Date: 20160203
  Receipt Date: 20160203
  Transmission Date: 20160526
  Serious: No
  Sender: FDA-Public Use
  Company Number: US-UCBSA-2015028786

PATIENT
  Sex: Female

DRUGS (1)
  1. KEPPRA [Suspect]
     Active Substance: LEVETIRACETAM
     Indication: SEIZURE

REACTIONS (6)
  - Balance disorder [Unknown]
  - Mood swings [Unknown]
  - Drug ineffective [Unknown]
  - Fatigue [Unknown]
  - Feeling drunk [Unknown]
  - Weight increased [Unknown]
